FAERS Safety Report 8461077-X (Version None)
Quarter: 2012Q2

REPORT INFORMATION
  Report Type: 
  Country: None (occurrence: None)
  Receive Date: 20120625
  Receipt Date: 20091111
  Transmission Date: 20120825
  Serious: No
  Sender: FDA-Public Use
  Company Number: 2009BI036951

PATIENT
  Age: 39 Year
  Sex: Female

DRUGS (2)
  1. TYSABRI [Suspect]
     Indication: MULTIPLE SCLEROSIS
     Route: 042
     Dates: start: 20071212, end: 20110610
  2. TYSABRI [Suspect]
     Route: 042
     Dates: start: 20110825

REACTIONS (5)
  - HAIR GROWTH ABNORMAL [None]
  - COORDINATION ABNORMAL [None]
  - TOOTH FRACTURE [None]
  - HYPOAESTHESIA [None]
  - ALOPECIA [None]
